FAERS Safety Report 10190643 (Version 1)
Quarter: 2014Q2

REPORT INFORMATION
  Report Type: Spontaneous
  Country: IN (occurrence: IN)
  Receive Date: 20140523
  Receipt Date: 20140523
  Transmission Date: 20141212
  Serious: Yes (Other)
  Sender: FDA-Public Use
  Company Number: IN-MERCK-1405IND009008

PATIENT
  Sex: Female

DRUGS (2)
  1. JANUVIA [Suspect]
     Indication: DIABETES MELLITUS
     Dosage: 50 MG, QD
     Route: 048
  2. NOVOMIX 30 [Concomitant]
     Dosage: 10 DF, BID

REACTIONS (2)
  - Fibroma [Not Recovered/Not Resolved]
  - Skin ulcer [Not Recovered/Not Resolved]
